FAERS Safety Report 7957692-X (Version None)
Quarter: 2011Q4

REPORT INFORMATION
  Report Type: 
  Country: None (occurrence: None)
  Receive Date: 20111205
  Receipt Date: 20111129
  Transmission Date: 20120403
  Serious: Yes (Other)
  Sender: FDA-Public Use
  Company Number: PHEH2010US02799

PATIENT
  Sex: Female
  Weight: 96 kg

DRUGS (18)
  1. PROTONIX [Concomitant]
  2. PAXIL [Concomitant]
     Dosage: 20 MG, QD
  3. AREDIA [Suspect]
     Indication: BREAST CANCER METASTATIC
     Dosage: 90 MG, QMO
     Route: 042
  4. LIPITOR [Concomitant]
  5. ZOCOR [Concomitant]
  6. CLARITIN [Concomitant]
     Dosage: 10 MG, PRN
  7. ASPIRIN [Concomitant]
  8. CARISOPRODOL [Concomitant]
  9. REMERON [Concomitant]
  10. CARDIZEM [Concomitant]
  11. ANASTROZOLE [Concomitant]
  12. DARVOCET-N 50 [Concomitant]
     Dosage: 2 DF, PRN
  13. ACTOS [Concomitant]
  14. PULMICORT [Concomitant]
  15. IRON [Concomitant]
  16. FLUDROCORTISONE ACETATE [Concomitant]
  17. DURAGESIC-100 [Concomitant]
  18. NEXIUM [Concomitant]
     Dosage: 40 MG, QD

REACTIONS (40)
  - OSTEONECROSIS OF JAW [None]
  - SINUSITIS [None]
  - EMPHYSEMA [None]
  - CHRONIC OBSTRUCTIVE PULMONARY DISEASE [None]
  - DENTAL CARIES [None]
  - ABDOMINAL PAIN [None]
  - CARDIAC DISORDER [None]
  - METASTASES TO BONE [None]
  - MUSCULOSKELETAL CHEST PAIN [None]
  - ANGIOMYOLIPOMA [None]
  - HYDRONEPHROSIS [None]
  - HYPOTENSION [None]
  - ANGINA PECTORIS [None]
  - EXPOSED BONE IN JAW [None]
  - PULMONARY EMBOLISM [None]
  - ASTHMA [None]
  - PECTUS EXCAVATUM [None]
  - RHINITIS [None]
  - INFECTION [None]
  - OSTEOMYELITIS [None]
  - DIVERTICULUM [None]
  - BLOOD CHOLESTEROL INCREASED [None]
  - HAEMANGIOMA [None]
  - GALLBLADDER POLYP [None]
  - DEFORMITY [None]
  - MYOCARDIAL INFARCTION [None]
  - OSTEOARTHRITIS [None]
  - DIABETES MELLITUS [None]
  - BACK PAIN [None]
  - DYSPNOEA [None]
  - HAEMATURIA [None]
  - HEADACHE [None]
  - MIGRAINE [None]
  - EAR PAIN [None]
  - PAIN [None]
  - INJURY [None]
  - ARTERIOSCLEROSIS [None]
  - INTERVERTEBRAL DISC DEGENERATION [None]
  - GASTROOESOPHAGEAL REFLUX DISEASE [None]
  - DYSPHAGIA [None]
